FAERS Safety Report 6274612-7 (Version None)
Quarter: 2009Q3

REPORT INFORMATION
  Report Type: 
  Country: None (occurrence: None)
  Receive Date: 20090717
  Receipt Date: 20090713
  Transmission Date: 20100115
  Serious: Yes (Other)
  Sender: FDA-Public Use
  Company Number: SPV1-2009-01109

PATIENT
  Age: 13 Year
  Sex: Female
  Weight: 46.7 kg

DRUGS (1)
  1. VYVANSE [Suspect]
     Indication: ATTENTION DEFICIT/HYPERACTIVITY DISORDER
     Dosage: 40 MG, 1X/DAY, QD; ORAL
     Route: 048
     Dates: start: 20080916, end: 20090529

REACTIONS (4)
  - FEELING ABNORMAL [None]
  - OFF LABEL USE [None]
  - SUICIDAL IDEATION [None]
  - WEIGHT DECREASED [None]
